FAERS Safety Report 18987741 (Version 1)
Quarter: 2021Q1

REPORT INFORMATION
  Report Type: Spontaneous
  Country: PT (occurrence: PT)
  Receive Date: 20210309
  Receipt Date: 20210309
  Transmission Date: 20210420
  Serious: Yes (Other)
  Sender: FDA-Public Use
  Company Number: NVSC2021PT047912

PATIENT
  Age: 70 Year
  Sex: Female
  Weight: 57 kg

DRUGS (1)
  1. REVOLADE [Suspect]
     Active Substance: ELTROMBOPAG OLAMINE
     Indication: THROMBOCYTOPENIA
     Dosage: 25 MG, QW (1 COMPRIMIDO POR SEMANA) (FORMULATION REPORTED AS COMPRIMIDO REVESTIDO POR PELICULA)
     Route: 048

REACTIONS (1)
  - Amnesia [Not Recovered/Not Resolved]

NARRATIVE: CASE EVENT DATE: 20191001
